FAERS Safety Report 7275163-3 (Version None)
Quarter: 2011Q1

REPORT INFORMATION
  Report Type: 
  Country: None (occurrence: None)
  Receive Date: 20110204
  Receipt Date: 20110125
  Transmission Date: 20110831
  Serious: Yes (Hospitalization, Other)
  Sender: FDA-Public Use
  Company Number: PHHY2011JP06421

PATIENT
  Sex: Male

DRUGS (3)
  1. SELBEX [Concomitant]
     Indication: PROPHYLAXIS
     Dosage: 1.5 G, UNK
     Route: 048
     Dates: start: 20090804
  2. FAMOTIDINE [Concomitant]
     Indication: PROPHYLAXIS
     Dosage: 40 MG, UNK
     Route: 048
     Dates: start: 20090812
  3. AMN107 [Suspect]
     Indication: CHRONIC MYELOID LEUKAEMIA
     Dosage: 800 MG, QD
     Route: 048
     Dates: start: 20090623

REACTIONS (1)
  - CEREBRAL INFARCTION [None]
